FAERS Safety Report 13557722 (Version 1)
Quarter: 2017Q2

REPORT INFORMATION
  Report Type: Spontaneous
  Country: NL (occurrence: NL)
  Receive Date: 20170518
  Receipt Date: 20170518
  Transmission Date: 20170830
  Serious: Yes (Other)
  Sender: FDA-Public Use
  Company Number: NL-PFIZER INC-2017209805

PATIENT
  Sex: Female

DRUGS (1)
  1. GENOTROPIN [Suspect]
     Active Substance: SOMATROPIN
     Indication: TURNER^S SYNDROME
     Dosage: UNK
     Route: 058

REACTIONS (6)
  - Pyrexia [Unknown]
  - Injection site pain [Recovered/Resolved]
  - Myositis [Unknown]
  - Injection site swelling [Recovered/Resolved]
  - Bacterial infection [Unknown]
  - Injection site erythema [Unknown]
